FAERS Safety Report 18255584 (Version 1)
Quarter: 2020Q3

REPORT INFORMATION
  Report Type: Spontaneous
  Country: US (occurrence: US)
  Receive Date: 20200910
  Receipt Date: 20200910
  Transmission Date: 20201103
  Serious: No
  Sender: FDA-Public Use
  Company Number: US-LEUCADIA PHARMACEUTICALS-2020LEU000235

PATIENT

DRUGS (1)
  1. DIHYDROERGOTAMINE MESYLATE. [Suspect]
     Active Substance: DIHYDROERGOTAMINE MESYLATE
     Indication: MIGRAINE
     Dosage: ONE DOSE
     Route: 045
     Dates: start: 20200804, end: 20200804

REACTIONS (2)
  - Headache [Recovering/Resolving]
  - Drug delivery system malfunction [Unknown]

NARRATIVE: CASE EVENT DATE: 202008
